FAERS Safety Report 5773737-X (Version None)
Quarter: 2008Q2

REPORT INFORMATION
  Report Type: 
  Country: None (occurrence: None)
  Receive Date: 20080601
  Receipt Date: 20080305
  Transmission Date: 20081010
  Serious: No
  Sender: FDA-Public Use
  Company Number: US200803001304

PATIENT
  Age: 70 Year
  Sex: Female

DRUGS (5)
  1. BYETTA [Suspect]
     Indication: DIABETES MELLITUS
     Dosage: 5 UG, DAILY (1/D), SUBCUTANEOUS ; 5 UG, DAILY (1/D), SUBCUTANEOUS
     Route: 058
     Dates: start: 20080101, end: 20080101
  2. BYETTA [Suspect]
     Indication: DIABETES MELLITUS
     Dosage: 5 UG, DAILY (1/D), SUBCUTANEOUS ; 5 UG, DAILY (1/D), SUBCUTANEOUS
     Route: 058
     Dates: start: 20080201
  3. HUMALOG [Concomitant]
  4. LEVEMIR (INSULIN DETEMIR) [Concomitant]
  5. HUMULIN N [Concomitant]

REACTIONS (3)
  - ASTHENIA [None]
  - BLOOD GLUCOSE DECREASED [None]
  - TREMOR [None]
